FAERS Safety Report 23751044 (Version 1)
Quarter: 2024Q2

REPORT INFORMATION
  Report Type: Spontaneous
  Country: GR (occurrence: None)
  Receive Date: 20240417
  Receipt Date: 20240417
  Transmission Date: 20240716
  Serious: Yes (Congenital Anomaly, Other)
  Sender: FDA-Public Use
  Company Number: GR-Unichem Pharmaceuticals (USA) Inc-UCM202404-000398

PATIENT
  Age: 17 Month
  Sex: Female

DRUGS (3)
  1. ARIPIPRAZOLE [Suspect]
     Active Substance: ARIPIPRAZOLE
     Indication: Foetal exposure during pregnancy
     Dosage: UNKNOWN
     Route: 064
  2. DIVALPROEX SODIUM [Suspect]
     Active Substance: DIVALPROEX SODIUM
     Indication: Foetal exposure during pregnancy
     Route: 064
  3. DIAZEPAM [Suspect]
     Active Substance: DIAZEPAM
     Indication: Foetal exposure during pregnancy
     Dosage: UNKNOWN
     Route: 064

REACTIONS (13)
  - Foetal anticonvulsant syndrome [Unknown]
  - Coloboma [Unknown]
  - Hypothyroidism [Unknown]
  - Syndactyly [Unknown]
  - Congenital skin dimples [Unknown]
  - Astigmatism [Unknown]
  - Dysmorphism [Unknown]
  - Hypotonia [Unknown]
  - Hyperreflexia [Unknown]
  - Cardiac murmur [Unknown]
  - Motor developmental delay [Unknown]
  - Deafness unilateral [Unknown]
  - Foetal exposure during pregnancy [Unknown]
